FAERS Safety Report 9723665 (Version 1)
Quarter: 2013Q4

REPORT INFORMATION
  Report Type: Spontaneous
  Country: FR (occurrence: FR)
  Receive Date: 20131202
  Receipt Date: 20131202
  Transmission Date: 20140711
  Serious: Yes (Death, Congenital Anomaly)
  Sender: FDA-Public Use
  Company Number: FR-GLAXOSMITHKLINE-B0947556B

PATIENT
  Sex: Female

DRUGS (1)
  1. LAMICTAL [Suspect]
     Indication: EPILEPSY
     Route: 064
     Dates: start: 201303

REACTIONS (4)
  - Holoprosencephaly [Fatal]
  - Lissencephaly [Fatal]
  - Nervous system disorder [Fatal]
  - Foetal exposure during pregnancy [Unknown]
